FAERS Safety Report 9442768 (Version 1)
Quarter: 2013Q3

REPORT INFORMATION
  Report Type: Spontaneous
  Country: PT (occurrence: PT)
  Receive Date: 20130806
  Receipt Date: 20130806
  Transmission Date: 20140515
  Serious: Yes (Other)
  Sender: FDA-Public Use
  Company Number: PT-MERCK-1308PRT000130

PATIENT
  Age: 29 Year
  Sex: Female
  Weight: 50 kg

DRUGS (3)
  1. VICTRELIS [Suspect]
     Dosage: DAILY DOSAGE 2400 MG
     Route: 048
     Dates: start: 20120411, end: 20130213
  2. PEGINTRON [Suspect]
     Dosage: DAILY DOSAGE 80 MICROGRAM
     Dates: start: 20120314, end: 20130213
  3. REBETOL [Suspect]
     Dosage: DAILY DOSE 1000 MG
     Route: 048
     Dates: start: 20120314, end: 20130213

REACTIONS (4)
  - Anaemia [Recovered/Resolved]
  - Transfusion [Unknown]
  - Transfusion [Unknown]
  - Transfusion [Unknown]
